FAERS Safety Report 4874275-9 (Version None)
Quarter: 2006Q1

REPORT INFORMATION
  Report Type: 
  Country: None (occurrence: None)
  Receive Date: 20060104
  Receipt Date: 20060104
  Transmission Date: 20060701
  Serious: Yes (Life-Threatening, Hospitalization)
  Sender: FDA-Public Use
  Company Number: None

PATIENT
  Age: 45 Year
  Sex: Female
  Weight: 79.5 kg

DRUGS (2)
  1. LORTAB [Suspect]
     Dosage: 10-15 TABS X 1
     Dates: start: 20050925, end: 20050925
  2. MOTRIN [Suspect]
     Dosage: {20 TABS X 1
     Dates: start: 20050925, end: 20050925

REACTIONS (1)
  - OVERDOSE [None]
